FAERS Safety Report 9041049 (Version 1)
Quarter: 2013Q1

REPORT INFORMATION
  Report Type: Spontaneous
  Country: US (occurrence: None)
  Receive Date: 20130124
  Receipt Date: 20130124
  Transmission Date: 20140127
  Serious: No
  Sender: FDA-Public Use
  Company Number: None

PATIENT
  Age: 69 Year
  Sex: Female
  Weight: 76.2 kg

DRUGS (1)
  1. VYTORIN / MERCK / SCHE [Suspect]
     Indication: BLOOD CHOLESTEROL ABNORMAL
     Dosage: 10-20 MG   1 TAB DAILY
     Dates: start: 2007

REACTIONS (5)
  - Myalgia [None]
  - Muscle spasms [None]
  - Hypoaesthesia [None]
  - Gait disturbance [None]
  - Muscular weakness [None]
